FAERS Safety Report 17316451 (Version 3)
Quarter: 2020Q1

REPORT INFORMATION
  Report Type: Spontaneous
  Country: CA (occurrence: CA)
  Receive Date: 20200124
  Receipt Date: 20200325
  Transmission Date: 20200409
  Serious: Yes (Other)
  Sender: FDA-Public Use
  Company Number: CA-PFIZER INC-2019265056

PATIENT
  Age: 73 Year
  Sex: Male

DRUGS (4)
  1. CORTISONE [Concomitant]
     Active Substance: CORTISONE
     Dosage: UNK
  2. XELJANZ [Suspect]
     Active Substance: TOFACITINIB CITRATE
     Dosage: 5 MG, 2X/DAY
     Route: 048
     Dates: start: 2019, end: 2020
  3. XELJANZ [Suspect]
     Active Substance: TOFACITINIB CITRATE
     Indication: COLITIS ULCERATIVE
     Dosage: 10 MG, 2X/DAY
     Route: 048
     Dates: start: 20190522, end: 2019
  4. XELJANZ [Suspect]
     Active Substance: TOFACITINIB CITRATE
     Dosage: 10 MG, 2X/DAY
     Route: 048
     Dates: start: 2020

REACTIONS (7)
  - Clostridium difficile infection [Recovering/Resolving]
  - Drug ineffective [Unknown]
  - Diarrhoea [Recovered/Resolved]
  - Frequent bowel movements [Not Recovered/Not Resolved]
  - Hepatic pain [Unknown]
  - Deafness [Unknown]
  - Malaise [Unknown]

NARRATIVE: CASE EVENT DATE: 201906
